FAERS Safety Report 24418939 (Version 2)
Quarter: 2024Q4

REPORT INFORMATION
  Report Type: Report from Study
  Country: US (occurrence: US)
  Receive Date: 20241009
  Receipt Date: 20241018
  Transmission Date: 20250115
  Serious: No
  Sender: ROCHE
  Company Number: US-ROCHE-3504004

PATIENT
  Age: 24 Year

DRUGS (2)
  1. ACTIVASE [Suspect]
     Active Substance: ALTEPLASE
     Indication: Intestinal fistula
     Dosage: DATE OF SERVICE REPORTED ON 20/AUG/2023, 06/JUL/2023, 25/JUN/2023, 21/JUN/2023.
     Route: 065
  2. ACTIVASE [Suspect]
     Active Substance: ALTEPLASE
     Indication: Complication associated with device

REACTIONS (2)
  - Off label use [Unknown]
  - No adverse event [Unknown]
